FAERS Safety Report 4705273-3 (Version None)
Quarter: 2005Q3

REPORT INFORMATION
  Report Type: 
  Country: None (occurrence: None)
  Receive Date: 20050701
  Receipt Date: 20050623
  Transmission Date: 20060218
  Serious: Yes (Other)
  Sender: FDA-Public Use
  Company Number: PHBS2005IE09030

PATIENT
  Age: 53 Year
  Sex: Male

DRUGS (3)
  1. GLEEVEC [Suspect]
     Indication: CHRONIC MYELOID LEUKAEMIA
     Dosage: 400 MG/D
     Route: 048
  2. GLEEVEC [Suspect]
     Dosage: 600 MG/D
     Route: 048
  3. GLEEVEC [Suspect]
     Dosage: 400 MG/D
     Route: 048

REACTIONS (3)
  - NEUROPATHY [None]
  - NEUTROPENIA [None]
  - PARAESTHESIA [None]
